FAERS Safety Report 5280832-0 (Version None)
Quarter: 2007Q1

REPORT INFORMATION
  Report Type: 
  Country: None (occurrence: None)
  Receive Date: 20070329
  Receipt Date: 20070326
  Transmission Date: 20070707
  Serious: Yes (Disabling, Other)
  Sender: FDA-Public Use
  Company Number: 2007AC00522

PATIENT
  Age: 52 Year
  Sex: Male

DRUGS (4)
  1. ZOLADEX [Suspect]
     Indication: PROSTATE CANCER
     Route: 058
  2. ZOLADEX [Suspect]
     Route: 058
  3. FLUTAMIDE [Concomitant]
     Indication: PROSTATE CANCER
  4. RADIOTHERAPY [Concomitant]
     Indication: PROSTATE CANCER

REACTIONS (1)
  - CATARACT SUBCAPSULAR [None]
